FAERS Safety Report 5596296-3 (Version None)
Quarter: 2008Q1

REPORT INFORMATION
  Report Type: 
  Country: None (occurrence: None)
  Receive Date: 20080118
  Receipt Date: 20080108
  Transmission Date: 20080703
  Serious: Yes (Hospitalization)
  Sender: FDA-Public Use
  Company Number: US-ABBOTT-08P-163-0432698-00

PATIENT
  Sex: Male
  Weight: 72 kg

DRUGS (6)
  1. HUMIRA [Suspect]
     Indication: RHEUMATOID ARTHRITIS
     Route: 058
     Dates: start: 20070801
  2. DULOXETINE HYDROCHLORIDE [Concomitant]
     Indication: DEPRESSION
     Route: 048
  3. LITHIUM CARBONATE [Concomitant]
     Indication: DEPRESSION
     Route: 048
  4. CLONAZEPAM [Concomitant]
     Indication: DEPRESSION
     Route: 048
  5. QUETIAPINE [Concomitant]
     Indication: DEPRESSION
     Route: 048
  6. KETOPROFEN [Concomitant]
     Indication: RHEUMATOID ARTHRITIS
     Route: 048

REACTIONS (2)
  - ACCIDENTAL EXPOSURE [None]
  - DEPRESSION [None]
